FAERS Safety Report 7078502-1 (Version None)
Quarter: 2010Q4

REPORT INFORMATION
  Report Type: 
  Country: None (occurrence: None)
  Receive Date: 20101102
  Receipt Date: 20101025
  Transmission Date: 20110411
  Serious: Yes (Other)
  Sender: FDA-Public Use
  Company Number: PHFR2010GB01556

PATIENT
  Sex: Male

DRUGS (4)
  1. CLOZARIL [Suspect]
     Dosage: 575 MG, UNK
     Route: 048
     Dates: start: 20030120
  2. CLOZARIL [Suspect]
     Dosage: 40 X 100 MG TABLETS
     Route: 048
     Dates: start: 20100729, end: 20100729
  3. CLOZARIL [Suspect]
     Dosage: UNK
     Dates: start: 20100707
  4. CLONAZEPAM [Concomitant]
     Dosage: 500 UG, UNK
     Route: 048
     Dates: end: 20101012

REACTIONS (8)
  - DYSARTHRIA [None]
  - ELECTROCARDIOGRAM QT PROLONGED [None]
  - NAUSEA [None]
  - NEUTROPHIL COUNT INCREASED [None]
  - OVERDOSE [None]
  - SOMNOLENCE [None]
  - VOMITING [None]
  - WHITE BLOOD CELL COUNT INCREASED [None]
